FAERS Safety Report 11990311 (Version 4)
Quarter: 2016Q4

REPORT INFORMATION
  Report Type: Spontaneous
  Country: US (occurrence: US)
  Receive Date: 20160202
  Receipt Date: 20161213
  Transmission Date: 20170206
  Serious: Yes (Death, Life-Threatening, Hospitalization, Other)
  Sender: FDA-Public Use
  Company Number: US-009507513-1602USA001346

PATIENT
  Sex: Female
  Weight: 61.22 kg

DRUGS (2)
  1. JANUVIA [Suspect]
     Active Substance: SITAGLIPTIN PHOSPHATE
     Indication: TYPE 2 DIABETES MELLITUS
     Dosage: 100 MG, QD
     Route: 048
     Dates: start: 20080123, end: 20080702
  2. JANUMET [Suspect]
     Active Substance: METFORMIN HYDROCHLORIDE\SITAGLIPTIN PHOSPHATE
     Indication: TYPE 2 DIABETES MELLITUS
     Dosage: 50/500 MG, QD
     Route: 048
     Dates: start: 20121210, end: 20130109

REACTIONS (45)
  - Spinal laminectomy [Unknown]
  - Cytopenia [Unknown]
  - Hepatomegaly [Unknown]
  - Anaemia [Unknown]
  - Metastases to pelvis [Unknown]
  - Cholestasis [Unknown]
  - Pulmonary calcification [Unknown]
  - Folliculitis [Unknown]
  - Gastrointestinal wall thickening [Unknown]
  - Gallbladder enlargement [Unknown]
  - Hepatic cirrhosis [Unknown]
  - Gastrooesophageal reflux disease [Unknown]
  - Ascites [Unknown]
  - Hypertension [Unknown]
  - Hypercholesterolaemia [Unknown]
  - Sleep apnoea syndrome [Unknown]
  - Pancreatic carcinoma metastatic [Fatal]
  - Thrombocytopenia [Unknown]
  - Excoriation [Unknown]
  - Spinal osteoarthritis [Unknown]
  - Anxiety [Not Recovered/Not Resolved]
  - Osteoarthritis [Unknown]
  - Bronchial wall thickening [Unknown]
  - Varicose veins of abdominal wall [Unknown]
  - Abdominal pain [Unknown]
  - Spinal fusion surgery [Unknown]
  - Type 1 diabetes mellitus [Unknown]
  - Hydrocholecystis [Unknown]
  - Diverticulum intestinal [Unknown]
  - Stomatitis [Unknown]
  - Skin mass [Unknown]
  - Spinal osteoarthritis [Unknown]
  - Knee operation [Unknown]
  - Gastrointestinal oedema [Unknown]
  - Chest pain [Unknown]
  - Lymphadenopathy [Unknown]
  - Bronchitis [Unknown]
  - Atelectasis [Unknown]
  - Pulmonary fibrosis [Unknown]
  - Pulmonary congestion [Unknown]
  - Atelectasis [Unknown]
  - Thyroid mass [Unknown]
  - Infection [Unknown]
  - Splenomegaly [Unknown]
  - Rash [Unknown]

NARRATIVE: CASE EVENT DATE: 20080225
